FAERS Safety Report 22144696 (Version 2)
Quarter: 2023Q2

REPORT INFORMATION
  Report Type: Report from Study
  Country: CA (occurrence: CA)
  Receive Date: 20230328
  Receipt Date: 20230417
  Transmission Date: 20230722
  Serious: Yes (Hospitalization)
  Sender: FDA-Public Use
  Company Number: CA-002147023-NVSC2023CA067268

PATIENT
  Age: 74 Year
  Sex: Female

DRUGS (1)
  1. BEOVU [Suspect]
     Active Substance: BROLUCIZUMAB-DBLL
     Indication: Neovascular age-related macular degeneration
     Dosage: UNK UNK, Q3MO (INJECTION)
     Route: 031
     Dates: start: 20211102

REACTIONS (1)
  - Gangrene [Not Recovered/Not Resolved]

NARRATIVE: CASE EVENT DATE: 20230321
